FAERS Safety Report 8005112-1 (Version None)
Quarter: 2011Q4

REPORT INFORMATION
  Report Type: 
  Country: None (occurrence: None)
  Receive Date: 20111223
  Receipt Date: 20111214
  Transmission Date: 20120403
  Serious: Yes (Hospitalization, Other)
  Sender: FDA-Public Use
  Company Number: PHHY2011FR103148

PATIENT
  Sex: Male
  Weight: 72 kg

DRUGS (4)
  1. ONBREZ [Suspect]
     Indication: CHRONIC OBSTRUCTIVE PULMONARY DISEASE
     Dosage: 150 UG, QD
     Dates: start: 20111102, end: 20111105
  2. BECLOMETHASONE DIPROPIONATE [Concomitant]
  3. QVAR 40 [Concomitant]
  4. SPIRIVA [Concomitant]

REACTIONS (6)
  - SUPRAVENTRICULAR TACHYCARDIA [None]
  - HAEMOPTYSIS [None]
  - ATRIAL FIBRILLATION [None]
  - COUGH [None]
  - CHEST PAIN [None]
  - ARRHYTHMIA [None]
